FAERS Safety Report 11431125 (Version 1)
Quarter: 2015Q3

REPORT INFORMATION
  Report Type: Spontaneous
  Country: US (occurrence: US)
  Receive Date: 20150828
  Receipt Date: 20150828
  Transmission Date: 20151125
  Serious: No
  Sender: FDA-Public Use
  Company Number: PHEH2014US003997

PATIENT
  Age: 73 Year
  Sex: Female
  Weight: 133 kg

DRUGS (5)
  1. ESTRADIOL. [Suspect]
     Active Substance: ESTRADIOL
     Indication: MENOPAUSAL SYMPTOMS
     Dosage: 25 UG, DAILY
     Route: 062
     Dates: start: 201203, end: 201205
  2. MONOPRIL [Concomitant]
     Active Substance: FOSINOPRIL SODIUM
     Dosage: UNK UKN, DAILY
     Route: 048
  3. VIVELLE DOT [Suspect]
     Active Substance: ESTRADIOL
     Indication: MENOPAUSAL SYMPTOMS
     Dosage: 70 UG, UNK
     Route: 062
  4. VIVELLE DOT [Suspect]
     Active Substance: ESTRADIOL
     Dosage: UNK UKN, UNK
     Route: 062
  5. MAXZIDE [Concomitant]
     Active Substance: HYDROCHLOROTHIAZIDE\TRIAMTERENE
     Dosage: UNK UKN, DAILY
     Route: 048

REACTIONS (4)
  - Hot flush [Recovered/Resolved]
  - Autonomic nervous system imbalance [Recovered/Resolved]
  - Stress [Unknown]
  - Menopausal symptoms [Recovered/Resolved]

NARRATIVE: CASE EVENT DATE: 201203
